FAERS Safety Report 9032106 (Version 3)
Quarter: 2013Q3

REPORT INFORMATION
  Report Type: Spontaneous
  Country: US (occurrence: US)
  Receive Date: 20130122
  Receipt Date: 20130702
  Transmission Date: 20140515
  Serious: Yes (Hospitalization)
  Sender: FDA-Public Use
  Company Number: US-BAYER-2013-006793

PATIENT
  Age: 21 Year
  Sex: Female
  Weight: 99.77 kg

DRUGS (3)
  1. YASMIN [Suspect]
     Indication: CONTRACEPTION
     Dosage: UNK
     Dates: start: 200804, end: 200908
  2. OCELLA [Suspect]
     Indication: CONTRACEPTION
     Dosage: UNK
     Dates: start: 200804, end: 200908
  3. DERMATOLOGICALS [Concomitant]
     Indication: VULVAR EROSION
     Dosage: 2 TIMES A DAY
     Dates: start: 20090612

REACTIONS (7)
  - Myocardial infarction [None]
  - Injury [None]
  - Pain [None]
  - Emotional distress [None]
  - General physical health deterioration [None]
  - Anxiety [None]
  - Pain [None]
